FAERS Safety Report 6821408-0 (Version None)
Quarter: 2010Q3

REPORT INFORMATION
  Report Type: 
  Country: None (occurrence: None)
  Receive Date: 20100707
  Receipt Date: 20081211
  Transmission Date: 20110219
  Serious: No
  Sender: FDA-Public Use
  Company Number: US-PFIZER INC-2008152717

PATIENT
  Age: 33 Year
  Sex: Male
  Weight: 113 kg

DRUGS (5)
  1. ZOLOFT [Suspect]
     Indication: DEPRESSION
     Dosage: 50 MG, 1X/DAY
     Dates: start: 20080801
  2. ZOLOFT [Suspect]
     Indication: OBSESSIVE-COMPULSIVE DISORDER
  3. ZOLOFT [Suspect]
     Indication: ANXIETY
  4. METHADONE [Concomitant]
     Indication: DRUG DEPENDENCE
     Dosage: 90 MG, UNK
  5. GENERAL NUTRIENTS [Concomitant]
     Dosage: UNK

REACTIONS (2)
  - DRUG INEFFECTIVE [None]
  - DRUG SCREEN POSITIVE [None]
